FAERS Safety Report 7019172-8 (Version None)
Quarter: 2010Q3

REPORT INFORMATION
  Report Type: 
  Country: None (occurrence: None)
  Receive Date: 20100928
  Receipt Date: 20100917
  Transmission Date: 20110219
  Serious: Yes (Death, Hospitalization)
  Sender: FDA-Public Use
  Company Number: JP-AMGEN-KDC425845

PATIENT
  Age: 69 Year
  Sex: Male
  Weight: 78 kg

DRUGS (31)
  1. VECTIBIX [Suspect]
     Indication: COLORECTAL CANCER
     Route: 041
     Dates: start: 20100706, end: 20100706
  2. ELPLAT [Suspect]
     Indication: COLORECTAL CANCER
     Route: 041
     Dates: start: 20100706, end: 20100706
  3. LANSOPRAZOLE [Concomitant]
     Indication: PROPHYLAXIS AGAINST GASTROINTESTINAL ULCER
     Route: 048
     Dates: end: 20100801
  4. BASEN OD [Concomitant]
     Indication: DIABETES MELLITUS
     Route: 048
     Dates: end: 20100801
  5. ISOVORIN [Concomitant]
     Indication: COLORECTAL CANCER
     Route: 041
     Dates: start: 20100706, end: 20100706
  6. ANTIHISTAMINES [Concomitant]
     Indication: PROPHYLAXIS
     Route: 041
     Dates: start: 20100706, end: 20100706
  7. CORTICOSTEROIDS [Concomitant]
     Indication: PROPHYLAXIS
     Route: 041
     Dates: start: 20100706, end: 20100706
  8. ZOFRAN [Concomitant]
     Indication: PROPHYLAXIS OF NAUSEA AND VOMITING
     Route: 042
     Dates: start: 20100706, end: 20100706
  9. ZANTAC [Concomitant]
     Indication: GASTRITIS PROPHYLAXIS
     Route: 042
     Dates: start: 20100706, end: 20100706
  10. DECADRON [Concomitant]
     Indication: PROPHYLAXIS OF NAUSEA AND VOMITING
     Route: 042
     Dates: start: 20100706, end: 20100706
  11. DECADRON [Concomitant]
     Indication: CANCER PAIN
     Route: 048
     Dates: end: 20100801
  12. POLARAMINE [Concomitant]
     Indication: ALLERGY PROPHYLAXIS
     Route: 042
     Dates: start: 20100706, end: 20100706
  13. TATHION [Concomitant]
     Indication: HEPATIC FUNCTION ABNORMAL
     Route: 042
     Dates: start: 20100706, end: 20100706
  14. BONALON [Concomitant]
     Indication: OSTEOPOROSIS PROPHYLAXIS
     Route: 048
     Dates: end: 20100801
  15. LOXONIN [Concomitant]
     Indication: CANCER PAIN
     Route: 048
     Dates: end: 20100801
  16. MS HOT PACK [Concomitant]
     Indication: CANCER PAIN
     Route: 062
     Dates: end: 20100801
  17. KADIAN [Concomitant]
     Indication: CANCER PAIN
     Route: 048
     Dates: end: 20100801
  18. DUROTEP MT PATCH [Concomitant]
     Indication: CANCER PAIN
     Route: 062
     Dates: end: 20100801
  19. BAKTAR [Concomitant]
     Indication: INFECTION PROPHYLAXIS
     Route: 048
     Dates: end: 20100801
  20. GABAPEN [Concomitant]
     Indication: CANCER PAIN
     Route: 048
     Dates: end: 20100801
  21. AMARYL [Concomitant]
     Indication: DIABETES MELLITUS
     Route: 048
     Dates: end: 20100801
  22. AMLODIN OD [Concomitant]
     Indication: HYPERTENSION
     Route: 048
     Dates: end: 20100801
  23. MAGMITT [Concomitant]
     Indication: CONSTIPATION
     Route: 048
     Dates: end: 20100801
  24. PURSENNID [Concomitant]
     Indication: CONSTIPATION
     Route: 048
     Dates: end: 20100801
  25. MYSER [Concomitant]
     Indication: RASH
     Route: 062
     Dates: end: 20100801
  26. AZUNOL OINTMENT [Concomitant]
     Indication: RASH
     Route: 062
     Dates: end: 20100801
  27. U-PASTA [Concomitant]
     Indication: SKIN EXFOLIATION
     Route: 062
     Dates: end: 20100801
  28. AZUNOL GARGLE LIQUID [Concomitant]
     Indication: STOMATITIS
     Route: 049
     Dates: end: 20100801
  29. XYLOCAINE [Concomitant]
     Indication: STOMATITIS
     Route: 049
     Dates: end: 20100801
  30. ALDACTONE [Concomitant]
     Indication: OEDEMA PERIPHERAL
     Route: 048
     Dates: end: 20100801
  31. LASIX [Concomitant]
     Indication: OEDEMA PERIPHERAL
     Route: 048
     Dates: end: 20100801

REACTIONS (4)
  - INFUSION RELATED REACTION [None]
  - INTERSTITIAL LUNG DISEASE [None]
  - METASTASES TO LIVER [None]
  - RESPIRATORY DISTRESS [None]
